FAERS Safety Report 8616132-8 (Version None)
Quarter: 2012Q3

REPORT INFORMATION
  Report Type: 
  Country: None (occurrence: None)
  Receive Date: 20120823
  Receipt Date: 20120815
  Transmission Date: 20120928
  Serious: Yes (Hospitalization, Disabling, Other)
  Sender: FDA-Public Use
  Company Number: US-009507513-1206USA04854

PATIENT

DRUGS (4)
  1. FOSAMAX [Suspect]
     Indication: OSTEOPOROSIS PROPHYLAXIS
  2. BONIVA [Suspect]
     Indication: MENOPAUSE
     Dosage: UNK
     Dates: end: 19950101
  3. FOSAMAX [Suspect]
     Indication: OSTEOPOROSIS
     Dosage: UNK, QW
     Route: 048
     Dates: start: 19950101, end: 20100101
  4. FOSAMAX [Suspect]
     Indication: MENOPAUSE

REACTIONS (19)
  - OSTEOPENIA [None]
  - LUMBAR SPINAL STENOSIS [None]
  - HAEMORRHAGIC ANAEMIA [None]
  - FRACTURE NONUNION [None]
  - OSTEOPOROSIS [None]
  - CORONARY ARTERY DISEASE [None]
  - CHOLECYSTECTOMY [None]
  - DEPRESSION [None]
  - HYPERLIPIDAEMIA [None]
  - FEMUR FRACTURE [None]
  - LOW TURNOVER OSTEOPATHY [None]
  - FOOT FRACTURE [None]
  - OSTEOARTHRITIS [None]
  - PROTEINURIA [None]
  - STRESS FRACTURE [None]
  - TYPE 2 DIABETES MELLITUS [None]
  - COAGULOPATHY [None]
  - HYPOALBUMINAEMIA [None]
  - INTERVERTEBRAL DISC PROTRUSION [None]
